FAERS Safety Report 9205036 (Version 1)
Quarter: 2013Q2

REPORT INFORMATION
  Report Type: Spontaneous
  Country: DE (occurrence: HR)
  Receive Date: 20130402
  Receipt Date: 20130402
  Transmission Date: 20140414
  Serious: Yes (Other)
  Sender: FDA-Public Use
  Company Number: 2013SP000875

PATIENT
  Age: 57 Year
  Sex: Male

DRUGS (5)
  1. ALVESCO INHALATION AEROSOL [Suspect]
     Indication: ASTHMA
     Route: 055
     Dates: start: 201203, end: 201206
  2. METFORMIN [Concomitant]
     Indication: DIABETES MELLITUS
     Route: 048
  3. METFORMIN [Concomitant]
     Indication: DIABETES MELLITUS
     Route: 048
  4. SALMETEROL/FLUTICASONPROPIONAAT [Concomitant]
     Indication: ASTHMA
  5. SALMETEROL/FLUTICASONPROPIONAAT [Concomitant]
     Indication: ASTHMA

REACTIONS (1)
  - Bronchospasm paradoxical [Recovered/Resolved]
